FAERS Safety Report 6652547-5 (Version None)
Quarter: 2010Q1

REPORT INFORMATION
  Report Type: 
  Country: None (occurrence: None)
  Receive Date: 20100325
  Receipt Date: 20100325
  Transmission Date: 20100710
  Serious: Yes (Other)
  Sender: FDA-Public Use
  Company Number: None

PATIENT
  Age: 49 Year
  Sex: Female
  Weight: 74.8435 kg

DRUGS (1)
  1. AZITHROMYCIN [Suspect]
     Indication: UPPER RESPIRATORY TRACT INFECTION
     Dosage: 1 DAILY PO
     Route: 048
     Dates: start: 20100322, end: 20100322

REACTIONS (3)
  - DIARRHOEA [None]
  - GASTROINTESTINAL PAIN [None]
  - PRODUCT SUBSTITUTION ISSUE [None]
